FAERS Safety Report 21275617 (Version 1)
Quarter: 2022Q3

REPORT INFORMATION
  Report Type: Spontaneous
  Country: CA (occurrence: CA)
  Receive Date: 20220831
  Receipt Date: 20220831
  Transmission Date: 20221027
  Serious: Yes (Death)
  Sender: FDA-Public Use
  Company Number: CA-KARYOPHARM-2022KPT001008

PATIENT

DRUGS (3)
  1. XPOVIO [Suspect]
     Active Substance: SELINEXOR
     Indication: Plasma cell myeloma
     Dosage: 80 MG, WEEKLY FOR 5 WEEKS (1 CYCLE)
     Route: 048
     Dates: start: 20220705, end: 202208
  2. BORTEZOMIB [Concomitant]
     Active Substance: BORTEZOMIB
  3. DEXAMETHASONE [Concomitant]
     Active Substance: DEXAMETHASONE

REACTIONS (1)
  - Death [Fatal]

NARRATIVE: CASE EVENT DATE: 20220818
